FAERS Safety Report 13895861 (Version 1)
Quarter: 2017Q3

REPORT INFORMATION
  Report Type: Spontaneous
  Country: US (occurrence: None)
  Receive Date: 20170821
  Receipt Date: 20170821
  Transmission Date: 20171127
  Serious: Yes (Other)
  Sender: FDA-Public Use
  Company Number: None

PATIENT
  Age: 63 Year
  Sex: Male
  Weight: 90.72 kg

DRUGS (4)
  1. ZIAC [Concomitant]
     Active Substance: BISOPROLOL FUMARATE\HYDROCHLOROTHIAZIDE
  2. FAMOTIDINE. [Concomitant]
     Active Substance: FAMOTIDINE
  3. BISOPROLOLOL-HCTZ 5-6.25MG GENERIC FOR ZIAC [Suspect]
     Active Substance: BISOPROLOL FUMARATE\HYDROCHLOROTHIAZIDE
     Indication: HYPERTENSION
     Dosage: ?          QUANTITY:1 ;?
     Route: 048
     Dates: start: 20170810, end: 20170815
  4. ROSUVASTATIN CALCIUM (GENERIC CRESTOR) [Concomitant]

REACTIONS (3)
  - Product substitution issue [None]
  - Palpitations [None]
  - Dizziness [None]
